FAERS Safety Report 24898727 (Version 2)
Quarter: 2025Q1

REPORT INFORMATION
  Report Type: Report from Study
  Country: US (occurrence: US)
  Receive Date: 20250129
  Receipt Date: 20250310
  Transmission Date: 20250409
  Serious: Yes (Other)
  Sender: ACADIA PHARMACEUTICALS
  Company Number: US-ACADIA PHARMACEUTICALS INC.-ACA-2025-TRF-000563

PATIENT
  Sex: Female

DRUGS (6)
  1. DAYBUE [Suspect]
     Active Substance: TROFINETIDE
     Indication: Rett syndrome
     Dosage: 40 MILLILITER, BID
     Route: 048
     Dates: start: 202308
  2. BANZEL [Concomitant]
     Active Substance: RUFINAMIDE
  3. CLOBAZAM [Concomitant]
     Active Substance: CLOBAZAM
  4. EPIDIOLEX [Concomitant]
     Active Substance: CANNABIDIOL
  5. KEPPRA [Concomitant]
     Active Substance: LEVETIRACETAM
  6. LAMOTRIGINE [Concomitant]
     Active Substance: LAMOTRIGINE

REACTIONS (3)
  - Gastrointestinal tube insertion [Recovered/Resolved]
  - Weight increased [Unknown]
  - Weight decreased [Unknown]
